FAERS Safety Report 9535473 (Version 2)
Quarter: 2014Q1

REPORT INFORMATION
  Report Type: Spontaneous
  Country: GB (occurrence: GB)
  Receive Date: 20130918
  Receipt Date: 20140204
  Transmission Date: 20141002
  Serious: Yes (Other)
  Sender: FDA-Public Use
  Company Number: GB-WATSON-2013-16313

PATIENT
  Age: 49 Year
  Sex: Female
  Weight: 54 kg

DRUGS (3)
  1. LAMOTRIGINE [Suspect]
     Indication: DEPRESSION
     Dosage: 25 MG, BID
     Route: 048
     Dates: start: 20130817
  2. LAMOTRIGINE [Suspect]
     Dosage: 25 MG, DAILY
     Route: 048
     Dates: start: 20130803, end: 20130816
  3. LITHIUM CARBONATE [Concomitant]
     Indication: PRODUCT USED FOR UNKNOWN INDICATION
     Dosage: 600 MG, DAILY, AT NIGHT
     Route: 065

REACTIONS (4)
  - Headache [Not Recovered/Not Resolved]
  - Anger [Recovering/Resolving]
  - Irritability [Recovering/Resolving]
  - Poor quality sleep [Recovering/Resolving]
